FAERS Safety Report 7290168-4 (Version None)
Quarter: 2011Q1

REPORT INFORMATION
  Report Type: 
  Country: None (occurrence: None)
  Receive Date: 20110214
  Receipt Date: 20110203
  Transmission Date: 20110831
  Serious: Yes (Death)
  Sender: FDA-Public Use
  Company Number: PHHY2010JP88249

PATIENT
  Sex: Female
  Weight: 45 kg

DRUGS (2)
  1. VALSARTAN [Suspect]
     Dosage: 80 MG, QD
     Route: 048
     Dates: start: 20080408
  2. AMLODIPINE [Concomitant]
     Indication: HYPERTENSION
     Dosage: 05 MG, UNK
     Route: 048
     Dates: start: 20080408

REACTIONS (2)
  - CONDITION AGGRAVATED [None]
  - BRAIN NEOPLASM [None]
